FAERS Safety Report 26065230 (Version 1)
Quarter: 2025Q4

REPORT INFORMATION
  Report Type: Spontaneous
  Country: US (occurrence: US)
  Receive Date: 20251119
  Receipt Date: 20251119
  Transmission Date: 20260118
  Serious: No
  Sender: BAYER HEALTHCARE LLC
  Company Number: US-BAYER-2025A153232

PATIENT
  Age: 72 Year
  Sex: Female

DRUGS (2)
  1. CLARITIN-D 24 HOUR [Suspect]
     Active Substance: LORATADINE\PSEUDOEPHEDRINE SULFATE
     Indication: Sinusitis
     Dosage: I TOOK 1 TABLET THIS MORNING
     Route: 048
     Dates: start: 20251118, end: 20251118
  2. FLONASE [Concomitant]
     Active Substance: FLUTICASONE PROPIONATE

REACTIONS (2)
  - Product prescribing issue [None]
  - Wrong technique in product usage process [None]

NARRATIVE: CASE EVENT DATE: 20251118
